FAERS Safety Report 21482167 (Version 1)
Quarter: 2022Q4

REPORT INFORMATION
  Report Type: Spontaneous
  Country: US (occurrence: US)
  Receive Date: 20221020
  Receipt Date: 20221020
  Transmission Date: 20230112
  Serious: Yes (Other)
  Sender: FDA-Public Use
  Company Number: US-SA-SAC20221017000708

PATIENT
  Age: 59 Year
  Sex: Male

DRUGS (1)
  1. ZANTAC [Suspect]
     Active Substance: RANITIDINE HYDROCHLORIDE
     Dosage: 150 MG, QD
     Dates: start: 200705, end: 201705

REACTIONS (3)
  - Bladder cancer stage IV [Not Recovered/Not Resolved]
  - Lung carcinoma cell type unspecified stage IV [Not Recovered/Not Resolved]
  - Testis cancer [Not Recovered/Not Resolved]

NARRATIVE: CASE EVENT DATE: 20190728
